FAERS Safety Report 4673577-9 (Version None)
Quarter: 2005Q2

REPORT INFORMATION
  Report Type: 
  Country: None (occurrence: None)
  Receive Date: 20050523
  Receipt Date: 20050510
  Transmission Date: 20051028
  Serious: Yes (Other)
  Sender: FDA-Public Use
  Company Number: 2005072756

PATIENT
  Sex: Male
  Weight: 158.759 kg

DRUGS (6)
  1. CELEBREX [Suspect]
     Indication: ARTHRALGIA
     Dosage: 600 MG (200 MG, 3 IN 1 D), ORAL
     Route: 048
     Dates: start: 19930101
  2. AVANDIA [Concomitant]
  3. LOTENSIN [Concomitant]
  4. LEXAPRO [Concomitant]
  5. VALIUM [Concomitant]
  6. ZOCOR [Concomitant]

REACTIONS (2)
  - ARTHRALGIA [None]
  - DRUG INEFFECTIVE [None]
